FAERS Safety Report 9822430 (Version 1)
Quarter: 2014Q1

REPORT INFORMATION
  Report Type: Spontaneous
  Country: US (occurrence: US)
  Receive Date: 20140116
  Receipt Date: 20140116
  Transmission Date: 20141002
  Serious: No
  Sender: FDA-Public Use
  Company Number: US-009507513-1401USA005513

PATIENT
  Age: 35 Year
  Sex: Male

DRUGS (4)
  1. CLARITIN-D-24 [Suspect]
     Indication: HYPERSENSITIVITY
     Dosage: UNK, UNKNOWN
     Route: 048
  2. CLARITIN-D-24 [Suspect]
     Indication: NASAL CONGESTION
  3. CLARITIN-D-24 [Suspect]
     Indication: SINUS OPERATION
  4. CLARITIN-D-24 [Suspect]
     Indication: COUGH

REACTIONS (1)
  - Drug ineffective [Unknown]
